FAERS Safety Report 25028809 (Version 2)
Quarter: 2025Q4

REPORT INFORMATION
  Report Type: Report from Study
  Country: US (occurrence: US)
  Receive Date: 20250302
  Receipt Date: 20251117
  Transmission Date: 20260117
  Serious: Yes (Hospitalization, Other)
  Sender: ABBVIE
  Company Number: US-ABBVIE-6149974

PATIENT
  Age: 80 Year
  Sex: Male

DRUGS (2)
  1. LINZESS [Suspect]
     Active Substance: LINACLOTIDE
     Indication: Product used for unknown indication
     Dosage: 1 CAPSULE DAILY AS NEEDED
     Route: 048
  2. MIRALAX [Concomitant]
     Active Substance: POLYETHYLENE GLYCOL 3350
     Indication: Product used for unknown indication

REACTIONS (6)
  - Irritable bowel syndrome [Recovering/Resolving]
  - Foreign body in gastrointestinal tract [Recovering/Resolving]
  - Gastrointestinal carcinoma [Recovering/Resolving]
  - Gastrointestinal tube insertion [Recovering/Resolving]
  - Procedural pain [Recovering/Resolving]
  - Anaemia [Unknown]

NARRATIVE: CASE EVENT DATE: 20250127
